FAERS Safety Report 8429331-5 (Version None)
Quarter: 2012Q2

REPORT INFORMATION
  Report Type: 
  Country: None (occurrence: None)
  Receive Date: 20120612
  Receipt Date: 20120604
  Transmission Date: 20120825
  Serious: Yes (Hospitalization)
  Sender: FDA-Public Use
  Company Number: US-BAYER-2012-023755

PATIENT
  Age: 17 Year
  Sex: Female
  Weight: 79.365 kg

DRUGS (2)
  1. YASMIN [Suspect]
     Route: 048
  2. PROTONIX [Concomitant]

REACTIONS (2)
  - INJURY [None]
  - PULMONARY EMBOLISM [None]
